FAERS Safety Report 6134597-0 (Version None)
Quarter: 2009Q1

REPORT INFORMATION
  Report Type: 
  Country: None (occurrence: None)
  Receive Date: 20090327
  Receipt Date: 20090325
  Transmission Date: 20090719
  Serious: Yes (Other)
  Sender: FDA-Public Use
  Company Number: JP-BRISTOL-MYERS SQUIBB COMPANY-14506372

PATIENT
  Age: 42 Year
  Sex: Female

DRUGS (1)
  1. KENACORT [Suspect]
     Indication: EPICONDYLITIS
     Dosage: 80 MG LOCALLY INJECTED
     Route: 014
     Dates: start: 20050101, end: 20050101

REACTIONS (1)
  - JOINT INSTABILITY [None]
